FAERS Safety Report 18492986 (Version 1)
Quarter: 2020Q4

REPORT INFORMATION
  Report Type: Spontaneous
  Country: US (occurrence: US)
  Receive Date: 20201112
  Receipt Date: 20201112
  Transmission Date: 20210114
  Serious: No
  Sender: FDA-Public Use
  Company Number: US-JNJFOC-20201109790

PATIENT
  Age: 49 Year
  Sex: Female

DRUGS (4)
  1. RUXOLITINIB [Concomitant]
     Active Substance: RUXOLITINIB
     Indication: MYELOPROLIFERATIVE NEOPLASM
  2. VENETOCLAX. [Concomitant]
     Active Substance: VENETOCLAX
     Indication: MYELOPROLIFERATIVE NEOPLASM
  3. DACOGEN [Suspect]
     Active Substance: DECITABINE
     Indication: MYELOPROLIFERATIVE NEOPLASM
     Route: 065
  4. AZACITIDINE. [Concomitant]
     Active Substance: AZACITIDINE
     Indication: MYELOPROLIFERATIVE NEOPLASM

REACTIONS (1)
  - Product use in unapproved indication [Unknown]
